FAERS Safety Report 6311765-6 (Version None)
Quarter: 2009Q3

REPORT INFORMATION
  Report Type: 
  Country: None (occurrence: None)
  Receive Date: 20090817
  Receipt Date: 20090805
  Transmission Date: 20100115
  Serious: Yes (Other)
  Sender: FDA-Public Use
  Company Number: DE-GENENTECH-288523

PATIENT
  Sex: Male

DRUGS (3)
  1. LUCENTIS [Suspect]
     Indication: MACULAR DEGENERATION
     Dosage: UNK
     Route: 031
     Dates: start: 20070901
  2. LUCENTIS [Suspect]
     Dosage: UNK
     Route: 031
     Dates: start: 20071001
  3. LUCENTIS [Suspect]
     Dosage: UNK
     Route: 031
     Dates: start: 20071101

REACTIONS (3)
  - IRIDOCYCLITIS [None]
  - UVEITIS [None]
  - VITRITIS [None]
